FAERS Safety Report 26190622 (Version 1)
Quarter: 2025Q4

REPORT INFORMATION
  Report Type: Report from Study
  Country: CO (occurrence: CO)
  Receive Date: 20251223
  Receipt Date: 20251223
  Transmission Date: 20260117
  Serious: Yes (Hospitalization, Other)
  Sender: RECORDATI
  Company Number: CO-RECORDATI-2024007439

PATIENT
  Sex: Female
  Weight: 62 kg

DRUGS (20)
  1. ISTURISA [Suspect]
     Active Substance: OSILODROSTAT PHOSPHATE
     Indication: Pituitary-dependent Cushing^s syndrome
     Dosage: 3 MG IN THE MORNING AND 2 MG IN THE EVENING
     Route: 048
     Dates: start: 20240828, end: 202410
  2. ISTURISA [Suspect]
     Active Substance: OSILODROSTAT PHOSPHATE
     Dosage: 2 MG, Q12H (DOSE REDUCED)
     Route: 048
     Dates: start: 202410, end: 20241227
  3. ISTURISA [Suspect]
     Active Substance: OSILODROSTAT PHOSPHATE
     Dosage: 2 MG, Q12H
     Route: 048
     Dates: start: 20250129, end: 2025
  4. ISTURISA [Suspect]
     Active Substance: OSILODROSTAT PHOSPHATE
     Dosage: 1 MG IN THE MORNING AND 2 MG IN THE EVENING
     Route: 048
     Dates: start: 2025, end: 2025
  5. ISTURISA [Suspect]
     Active Substance: OSILODROSTAT PHOSPHATE
     Dosage: 3 MG IN THE MORNING AND 2 MG IN THE EVENING
     Route: 048
     Dates: start: 2025, end: 20250509
  6. ISTURISA [Suspect]
     Active Substance: OSILODROSTAT PHOSPHATE
     Dosage: 3 DOSAGE FORM (5 MG TABLETS), Q12H, (15 MG Q12H)
     Route: 048
     Dates: start: 20250516, end: 2025
  7. ISTURISA [Suspect]
     Active Substance: OSILODROSTAT PHOSPHATE
     Dosage: 3 DOSAGE FORM (5 MG TABLETS), Q12H, (15 MG Q12H)
     Route: 048
     Dates: start: 2025, end: 20250617
  8. ISTURISA [Suspect]
     Active Substance: OSILODROSTAT PHOSPHATE
     Dosage: 15 MILLIGRAM, Q12H
     Route: 048
     Dates: start: 2025, end: 20251120
  9. EMPAGLIFLOZIN [Concomitant]
     Active Substance: EMPAGLIFLOZIN
     Indication: Type 2 diabetes mellitus
     Dosage: 10 MG PER DAY
  10. ATORVASTATIN [Concomitant]
     Active Substance: ATORVASTATIN
     Indication: Dyslipidaemia
     Dosage: 40 MG PER DAY
  11. ATORVASTATIN [Concomitant]
     Active Substance: ATORVASTATIN
     Indication: Hepatic steatosis
  12. METFORMIN\SITAGLIPTIN [Concomitant]
     Active Substance: METFORMIN\SITAGLIPTIN
     Indication: Type 2 diabetes mellitus
     Dosage: 1 DOSAGE FORM, Q12H (1000/50 MG, EVERY 12 HOURS)
  13. CALCIUM CITRATE\VITAMIN D [Concomitant]
     Active Substance: CALCIUM CITRATE\VITAMIN D
     Indication: Vitamin supplementation
     Dosage: 1500/200 MG PER DAY
  14. CABERGOLINE [Concomitant]
     Active Substance: CABERGOLINE
     Indication: Pituitary tumour benign
     Dosage: TIW (WEEKLY MONDAY, WEDNESDAY, FRIDAY), STRENGTH: 0.5 MG
  15. ROSUVASTATIN [Concomitant]
     Active Substance: ROSUVASTATIN
     Indication: Hepatic steatosis
     Dosage: 20 MG, QD (EVERY 24 HOURS)
  16. AMLODIPINE [Concomitant]
     Active Substance: AMLODIPINE BESYLATE
     Indication: Ischaemic stroke
     Dosage: 5 MG, Q12H
  17. VALSARTAN [Concomitant]
     Active Substance: VALSARTAN
     Indication: Ischaemic stroke
     Dosage: 12.5 MG, Q12H
  18. HYDROCHLOROTHIAZIDE [Concomitant]
     Active Substance: HYDROCHLOROTHIAZIDE
     Indication: Ischaemic stroke
     Dosage: 160 MG, Q12H
  19. SPIRONOLACTONE [Concomitant]
     Active Substance: SPIRONOLACTONE
     Indication: Ischaemic stroke
     Dosage: 2.5 MG, QD
  20. METOPROLOL [Concomitant]
     Active Substance: METOPROLOL
     Indication: Ischaemic stroke
     Dosage: 50 MG, QD

REACTIONS (19)
  - Urinary tract infection [Not Recovered/Not Resolved]
  - Rheumatoid arthritis [Not Recovered/Not Resolved]
  - Discouragement [Recovered/Resolved]
  - Discouragement [Recovered/Resolved]
  - Liver function test abnormal [Not Recovered/Not Resolved]
  - Activities of daily living decreased [Unknown]
  - Drug hypersensitivity [Not Recovered/Not Resolved]
  - General physical health deterioration [Unknown]
  - Dyspnoea [Recovered/Resolved]
  - Musculoskeletal stiffness [Not Recovered/Not Resolved]
  - Insomnia [Recovered/Resolved]
  - Hypotension [Not Recovered/Not Resolved]
  - Asthenia [Recovered/Resolved]
  - Asthenia [Not Recovered/Not Resolved]
  - Asthenia [Not Recovered/Not Resolved]
  - Vomiting [Not Recovered/Not Resolved]
  - Decreased appetite [Not Recovered/Not Resolved]
  - Rash [Not Recovered/Not Resolved]
  - Intentional product use issue [Recovered/Resolved]

NARRATIVE: CASE EVENT DATE: 20240101
